FAERS Safety Report 6266807-3 (Version None)
Quarter: 2009Q3

REPORT INFORMATION
  Report Type: 
  Country: None (occurrence: None)
  Receive Date: 20090714
  Receipt Date: 20090703
  Transmission Date: 20100115
  Serious: Yes (Hospitalization)
  Sender: FDA-Public Use
  Company Number: JP-JNJFOC-20090406272

PATIENT
  Sex: Female

DRUGS (10)
  1. REMICADE [Suspect]
     Dosage: TOTAL OF 2 INFUSIONS ADMINISTERED
     Route: 042
  2. REMICADE [Suspect]
     Indication: RHEUMATOID ARTHRITIS
     Dosage: 1 INFUSION
     Route: 042
  3. ARAVA [Suspect]
     Indication: RHEUMATOID ARTHRITIS
     Route: 048
  4. PREDNISOLONE [Concomitant]
     Indication: RHEUMATOID ARTHRITIS
  5. ASPIRIN [Concomitant]
     Indication: ANGINA PECTORIS
     Route: 048
  6. ISCOTIN [Concomitant]
     Indication: ANTIBIOTIC PROPHYLAXIS
     Route: 048
  7. PYDOXAL [Concomitant]
     Indication: HYPOVITAMINOSIS
     Route: 048
  8. GASTER [Concomitant]
     Indication: GASTRITIS
     Route: 048
  9. GASMOTIN [Concomitant]
     Indication: GASTROENTERITIS
     Route: 048
  10. CLARITHROMYCIN [Concomitant]
     Indication: BRONCHITIS CHRONIC
     Route: 048

REACTIONS (1)
  - CYTOMEGALOVIRUS GASTROENTERITIS [None]
